FAERS Safety Report 10272641 (Version 8)
Quarter: 2015Q3

REPORT INFORMATION
  Report Type: Report from Study
  Country: US (occurrence: US)
  Receive Date: 20140702
  Receipt Date: 20150901
  Transmission Date: 20151125
  Serious: Yes (Other)
  Sender: FDA-Public Use
  Company Number: PHEH2014US012921

PATIENT
  Age: 56 Year
  Sex: Female

DRUGS (2)
  1. GILENYA [Suspect]
     Active Substance: FINGOLIMOD HYDROCHLORIDE
     Indication: RELAPSING-REMITTING MULTIPLE SCLEROSIS
     Dosage: 0.5 MG, QD
     Route: 048
     Dates: end: 20140616
  2. VALIUM [Concomitant]
     Active Substance: DIAZEPAM
     Indication: BIOPSY BONE
     Route: 042

REACTIONS (6)
  - Non-Hodgkin^s lymphoma [Unknown]
  - Somnolence [Unknown]
  - Memory impairment [Unknown]
  - Frustration [Unknown]
  - Pyrexia [Unknown]
  - Headache [Unknown]

NARRATIVE: CASE EVENT DATE: 20140613
